FAERS Safety Report 25095162 (Version 1)
Quarter: 2025Q1

REPORT INFORMATION
  Report Type: Spontaneous
  Country: US (occurrence: US)
  Receive Date: 20250319
  Receipt Date: 20250319
  Transmission Date: 20250408
  Serious: No
  Sender: GALDERMA
  Company Number: US-GALDERMA-US2024016333

PATIENT

DRUGS (4)
  1. PROACTIV MD ADAPALENE ACNE TREATMENT [Suspect]
     Active Substance: ADAPALENE
     Indication: Therapeutic skin care topical
     Route: 061
     Dates: start: 202410, end: 20241023
  2. PROACTIV MD ADAPALENE ACNE TREATMENT [Suspect]
     Active Substance: ADAPALENE
     Route: 061
     Dates: start: 202410, end: 20241023
  3. Proactiv MD Ultra Gentle Cleanser [Concomitant]
     Indication: Therapeutic skin care topical
     Route: 061
  4. COSMETICS [Concomitant]
     Active Substance: COSMETICS
     Indication: Therapeutic skin care topical
     Route: 061

REACTIONS (1)
  - Condition aggravated [Not Recovered/Not Resolved]

NARRATIVE: CASE EVENT DATE: 20241001
